FAERS Safety Report 4762138-9 (Version None)
Quarter: 2005Q3

REPORT INFORMATION
  Report Type: 
  Country: None (occurrence: None)
  Receive Date: 20050906
  Receipt Date: 20050906
  Transmission Date: 20060218
  Serious: No
  Sender: FDA-Public Use
  Company Number: None

PATIENT

DRUGS (2)
  1. PALLADONE [Suspect]
     Dosage: CAPSULE, EXTENDED RELEASE
  2. PALLIDONE [Suspect]
     Dosage: TABLET

REACTIONS (1)
  - MEDICATION ERROR [None]
